FAERS Safety Report 4786966-9 (Version None)
Quarter: 2005Q4

REPORT INFORMATION
  Report Type: 
  Country: None (occurrence: None)
  Receive Date: 20051004
  Receipt Date: 20010409
  Transmission Date: 20060501
  Serious: Yes (Other)
  Sender: FDA-Public Use
  Company Number: US-GLAXOSMITHKLINE-A0346375A

PATIENT
  Age: 31 Year
  Sex: Female

DRUGS (4)
  1. PAXIL [Suspect]
  2. ALCOHOL [Suspect]
     Route: 048
  3. ZOLOFT [Suspect]
  4. ALPRAZOLAM [Concomitant]

REACTIONS (3)
  - HOMICIDE [None]
  - POISONING [None]
  - PSYCHOTIC DISORDER [None]
